FAERS Safety Report 6827192-9 (Version None)
Quarter: 2010Q3

REPORT INFORMATION
  Report Type: 
  Country: None (occurrence: None)
  Receive Date: 20100709
  Receipt Date: 20100702
  Transmission Date: 20110219
  Serious: Yes (Death, Other)
  Sender: FDA-Public Use
  Company Number: US-ELI_LILLY_AND_COMPANY-US201006001791

PATIENT
  Sex: Female
  Weight: 71.927 kg

DRUGS (5)
  1. ALIMTA [Suspect]
     Indication: NON-SMALL CELL LUNG CANCER STAGE IV
     Dosage: 900 MG, UNK
     Dates: start: 20100304
  2. CARBOPLATIN [Concomitant]
     Dosage: 6 UNK, UNK
  3. AVASTIN [Concomitant]
     Dosage: 1000 MG, UNK
  4. OXYCODONE HCL [Concomitant]
     Indication: PAIN
  5. IBUPROFEN [Concomitant]

REACTIONS (6)
  - FALL [None]
  - HAEMATOCRIT DECREASED [None]
  - HOSPICE CARE [None]
  - MALIGNANT NEOPLASM PROGRESSION [None]
  - NEUTROPHIL COUNT DECREASED [None]
  - WHITE BLOOD CELL COUNT DECREASED [None]
